FAERS Safety Report 5397587-1 (Version None)
Quarter: 2007Q3

REPORT INFORMATION
  Report Type: 
  Country: None (occurrence: None)
  Receive Date: 20070726
  Receipt Date: 20070717
  Transmission Date: 20080115
  Serious: Yes (Other)
  Sender: FDA-Public Use
  Company Number: US-ROCHE-419293

PATIENT
  Age: 40 Year
  Sex: Female
  Weight: 62.1 kg

DRUGS (4)
  1. PEG-INTERFERON A-2A (RO 25-8310) [Suspect]
     Route: 058
     Dates: start: 20050527, end: 20050617
  2. RIBAVIRIN [Suspect]
     Route: 048
     Dates: start: 20050527, end: 20050617
  3. TYLENOL (CAPLET) [Concomitant]
     Indication: HEADACHE
     Dates: start: 20050528, end: 20050529
  4. CONTRACEPTIVE NOS [Concomitant]
     Dosage: DAILY.
     Route: 048
     Dates: start: 20050508

REACTIONS (1)
  - AKATHISIA [None]
